FAERS Safety Report 5062373-9 (Version None)
Quarter: 2006Q3

REPORT INFORMATION
  Report Type: 
  Country: None (occurrence: None)
  Receive Date: 20060726
  Receipt Date: 20060628
  Transmission Date: 20061208
  Serious: Yes (Other)
  Sender: FDA-Public Use
  Company Number: BE-GLAXOSMITHKLINE-B0429591A

PATIENT
  Age: 45 Year
  Sex: Male

DRUGS (3)
  1. LAMOTRIGINE [Suspect]
     Indication: BIPOLAR DISORDER
     Route: 048
     Dates: start: 20060501, end: 20060601
  2. DEPAKENE [Concomitant]
     Indication: BIPOLAR DISORDER
     Dosage: 600MG TWICE PER DAY
     Route: 048
     Dates: start: 20030101
  3. EFFEXOR XR [Concomitant]
     Indication: DEPRESSION
     Dosage: 150MG PER DAY
     Route: 048
     Dates: start: 20050101

REACTIONS (9)
  - APHTHOUS STOMATITIS [None]
  - ERYTHRODERMIC PSORIASIS [None]
  - MUCOUS MEMBRANE DISORDER [None]
  - PAIN [None]
  - PSORIASIS [None]
  - SKIN CHAPPED [None]
  - SKIN EXFOLIATION [None]
  - SWELLING FACE [None]
  - TONGUE ULCERATION [None]
